FAERS Safety Report 24867872 (Version 1)
Quarter: 2025Q1

REPORT INFORMATION
  Report Type: Report from Study
  Country: US (occurrence: US)
  Receive Date: 20250121
  Receipt Date: 20250121
  Transmission Date: 20250409
  Serious: Yes (Other)
  Sender: SANDOZ
  Company Number: US-SANDOZ-SDZ2025US002851

PATIENT
  Sex: Male

DRUGS (1)
  1. OMNITROPE [Suspect]
     Active Substance: SOMATROPIN
     Indication: Short stature
     Dosage: 3.2 MG, QD
     Route: 058
     Dates: start: 20250112

REACTIONS (3)
  - Type 1 diabetes mellitus [Unknown]
  - Injection site pain [Unknown]
  - Wrong technique in product usage process [Unknown]
